FAERS Safety Report 4409976-X (Version None)
Quarter: 2004Q3

REPORT INFORMATION
  Report Type: 
  Country: None (occurrence: None)
  Receive Date: 20040726
  Receipt Date: 20040709
  Transmission Date: 20050211
  Serious: No
  Sender: FDA-Public Use
  Company Number: CA-2004-026862

PATIENT
  Age: 53 Year
  Sex: Female

DRUGS (9)
  1. BETASERON [Suspect]
     Indication: PROGRESSIVE MULTIPLE SCLEROSIS
     Dosage: 8 MIU, EVERY 2D,SUBCUTANEOUS
     Route: 058
     Dates: start: 20000418
  2. BACLOFEN [Concomitant]
  3. EFFEXOR/CAN/ (VENLAFAXINE HYDROCHLORIDE) [Concomitant]
  4. CELEBREX [Concomitant]
  5. LIPITOR [Concomitant]
  6. IMOVANE (ZOPICLONE) [Concomitant]
  7. FOSAMAX [Concomitant]
  8. DIAZEPAM [Concomitant]
  9. MULTIVITAMINS (PANTHENOL,RETINOL) [Concomitant]

REACTIONS (2)
  - CHOLELITHIASIS [None]
  - LIVER FUNCTION TEST ABNORMAL [None]
